FAERS Safety Report 7013844-7 (Version None)
Quarter: 2010Q3

REPORT INFORMATION
  Report Type: 
  Country: None (occurrence: None)
  Receive Date: 20100924
  Receipt Date: 20100915
  Transmission Date: 20110219
  Serious: Yes (Other)
  Sender: FDA-Public Use
  Company Number: US-SANOFI-AVENTIS-2010SA056282

PATIENT
  Age: 66 Year
  Sex: Male

DRUGS (5)
  1. PLAVIX [Suspect]
     Indication: STENT PLACEMENT
     Route: 048
     Dates: start: 20040101, end: 20100625
  2. PLAVIX [Suspect]
     Route: 048
     Dates: start: 20100902
  3. ASPIRIN [Suspect]
     Indication: STENT PLACEMENT
     Route: 048
     Dates: start: 20040101, end: 20100625
  4. ASPIRIN [Suspect]
     Route: 048
     Dates: start: 20100902, end: 20100906
  5. ASPIRIN [Suspect]
     Route: 048
     Dates: start: 20100906

REACTIONS (5)
  - ASTHENIA [None]
  - BACK DISORDER [None]
  - CONTUSION [None]
  - FATIGUE [None]
  - PAIN IN EXTREMITY [None]
